FAERS Safety Report 7055326-2 (Version None)
Quarter: 2010Q4

REPORT INFORMATION
  Report Type: 
  Country: None (occurrence: None)
  Receive Date: 20101021
  Receipt Date: 20101011
  Transmission Date: 20110411
  Serious: Yes (Hospitalization)
  Sender: FDA-Public Use
  Company Number: TR-ELI_LILLY_AND_COMPANY-TR201002006104

PATIENT
  Age: 27 Year
  Sex: Female

DRUGS (5)
  1. HUMALOG [Suspect]
     Indication: GESTATIONAL DIABETES
     Dosage: 20 IU, EACH MORNING
     Route: 058
     Dates: start: 20091226, end: 20100428
  2. HUMALOG [Suspect]
     Dosage: 14 IU, OTHER
     Route: 058
  3. HUMALOG [Suspect]
     Dosage: 11 IU, EACH EVENING
     Route: 058
  4. CALCIUM [Concomitant]
     Indication: MINERAL SUPPLEMENTATION
     Dosage: UNK, DAILY (1/D)
  5. IRON [Concomitant]
     Indication: MINERAL SUPPLEMENTATION
     Dosage: UNK, DAILY (1/D)

REACTIONS (2)
  - DRUG EXPOSURE DURING PREGNANCY [None]
  - PRE-ECLAMPSIA [None]
